FAERS Safety Report 5964753-3 (Version None)
Quarter: 2008Q4

REPORT INFORMATION
  Report Type: 
  Country: None (occurrence: None)
  Receive Date: 20081125
  Receipt Date: 20081024
  Transmission Date: 20090506
  Serious: No
  Sender: FDA-Public Use
  Company Number: US-AMGEN-KDL313818

PATIENT
  Sex: Male
  Weight: 65.8 kg

DRUGS (3)
  1. ENBREL [Suspect]
     Indication: JUVENILE ARTHRITIS
     Route: 058
     Dates: start: 20081009
  2. IBUPROFEN TABLETS [Concomitant]
     Dates: start: 20080918
  3. CALCIUM WITH VITAMIN D [Concomitant]
     Dates: start: 20081003

REACTIONS (5)
  - FATIGUE [None]
  - HYPERSOMNIA [None]
  - INJECTION SITE HAEMORRHAGE [None]
  - INJECTION SITE PAIN [None]
  - SENSATION OF HEAVINESS [None]
